FAERS Safety Report 4663948-9 (Version None)
Quarter: 2005Q2

REPORT INFORMATION
  Report Type: 
  Country: None (occurrence: None)
  Receive Date: 20050502
  Receipt Date: 20050207
  Transmission Date: 20051028
  Serious: Yes (Hospitalization)
  Sender: FDA-Public Use
  Company Number: 140707USA

PATIENT
  Age: 77 Year
  Sex: Female
  Weight: 81.6475 kg

DRUGS (13)
  1. GABAPENTIN [Suspect]
     Indication: DIABETIC NEUROPATHY
     Dosage: 400 MILLIGRAM QID ORAL
     Route: 048
     Dates: start: 20041104, end: 20041110
  2. COREG [Concomitant]
  3. FOLTX [Concomitant]
  4. ULTRAM [Concomitant]
  5. TOPICAL CREAMS (UNKNOWN) [Concomitant]
  6. ZOCOR [Concomitant]
  7. TIAZAC [Concomitant]
  8. LISINOPRIL [Concomitant]
  9. MICRONASE [Concomitant]
  10. ZANTAC [Concomitant]
  11. ISORDIL [Concomitant]
  12. PLAVIX [Concomitant]
  13. LASIX [Concomitant]

REACTIONS (14)
  - ABDOMINAL PAIN UPPER [None]
  - AMNESIA [None]
  - BALANCE DISORDER [None]
  - DIZZINESS [None]
  - DYSARTHRIA [None]
  - FALL [None]
  - FEELING ABNORMAL [None]
  - HEADACHE [None]
  - HYPERHIDROSIS [None]
  - HYPOAESTHESIA [None]
  - INSOMNIA [None]
  - LETHARGY [None]
  - MUSCULOSKELETAL STIFFNESS [None]
  - NERVOUSNESS [None]
